FAERS Safety Report 11645405 (Version 2)
Quarter: 2016Q1

REPORT INFORMATION
  Report Type: Spontaneous
  Country: JP (occurrence: JP)
  Receive Date: 20151020
  Receipt Date: 20160125
  Transmission Date: 20160525
  Serious: Yes (Other)
  Sender: FDA-Public Use
  Company Number: JP-PFIZER INC-2015352167

PATIENT
  Age: 66 Year
  Sex: Male
  Weight: 52 kg

DRUGS (4)
  1. MOSAPRIDE CITRATE [Concomitant]
     Active Substance: MOSAPRIDE CITRATE
     Dosage: UNK
     Dates: start: 20150902, end: 20150913
  2. SHAKUYAKUKANZOTO [Concomitant]
     Active Substance: HERBALS
     Dosage: UNK
     Route: 048
     Dates: start: 20150902, end: 20150913
  3. AMEPAROMO [Suspect]
     Active Substance: PAROMOMYCIN SULFATE
     Indication: AMOEBIC DYSENTERY
     Dosage: 1500 MG, DAILY
     Route: 048
     Dates: start: 20150905, end: 20150913
  4. DOMPERIDONE [Concomitant]
     Active Substance: DOMPERIDONE
     Dosage: UNK
     Route: 048
     Dates: start: 20150902, end: 20150913

REACTIONS (1)
  - Intestinal prolapse [Recovered/Resolved]

NARRATIVE: CASE EVENT DATE: 20150906
